FAERS Safety Report 9744010 (Version 1)
Quarter: 2013Q4

REPORT INFORMATION
  Report Type: Spontaneous
  Country: US (occurrence: US)
  Receive Date: 20131210
  Receipt Date: 20131210
  Transmission Date: 20140711
  Serious: No
  Sender: FDA-Public Use
  Company Number: US-TEVA-382709USA

PATIENT
  Age: 26 Year
  Sex: Female
  Weight: 71.28 kg

DRUGS (3)
  1. PARAGARD 380A [Suspect]
     Indication: CONTRACEPTION
     Route: 015
     Dates: start: 20121207, end: 20130123
  2. PARAGARD 380A [Suspect]
     Route: 015
     Dates: start: 20130123
  3. BROMOCRIPTINE [Concomitant]
     Dosage: 25 MILLIGRAM DAILY;
     Route: 048

REACTIONS (1)
  - Device expulsion [Recovered/Resolved]
